FAERS Safety Report 6092223-3 (Version None)
Quarter: 2009Q1

REPORT INFORMATION
  Report Type: 
  Country: None (occurrence: None)
  Receive Date: 20090225
  Receipt Date: 20090218
  Transmission Date: 20090719
  Serious: Yes (Hospitalization, Congenital Anomaly)
  Sender: FDA-Public Use
  Company Number: A0679386A

PATIENT
  Sex: Male

DRUGS (5)
  1. PAXIL [Suspect]
     Indication: DEPRESSION
     Dosage: 20MG PER DAY
     Route: 048
  2. PAXIL CR [Suspect]
     Indication: DEPRESSION
     Route: 048
     Dates: start: 20030403, end: 20050513
  3. PAROXETINE HCL [Suspect]
     Indication: DEPRESSION
     Dosage: 40MG UNKNOWN
     Dates: start: 20050609, end: 20080705
  4. VITAMIN TAB [Concomitant]
  5. FERROUS SULFATE TAB [Concomitant]

REACTIONS (7)
  - ATRIAL SEPTAL DEFECT [None]
  - CARDIOVASCULAR DISORDER [None]
  - DILATATION VENTRICULAR [None]
  - DRUG EXPOSURE DURING PREGNANCY [None]
  - EBSTEIN'S ANOMALY [None]
  - MITRAL VALVE INCOMPETENCE [None]
  - PATENT DUCTUS ARTERIOSUS [None]
